FAERS Safety Report 10652652 (Version 4)
Quarter: 2015Q2

REPORT INFORMATION
  Report Type: Report from Study
  Country: US (occurrence: US)
  Receive Date: 20141215
  Receipt Date: 20150501
  Transmission Date: 20150821
  Serious: Yes (Other)
  Sender: FDA-Public Use
  Company Number: US-SA-2014SA170017

PATIENT
  Age: 52 Year
  Sex: Female

DRUGS (1)
  1. AUBAGIO [Suspect]
     Active Substance: TERIFLUNOMIDE
     Indication: MULTIPLE SCLEROSIS
     Route: 048
     Dates: start: 20141109

REACTIONS (12)
  - Back pain [Unknown]
  - Headache [Unknown]
  - Vision blurred [Unknown]
  - Intervertebral disc protrusion [Unknown]
  - Sensory disturbance [Unknown]
  - Optic neuritis [Unknown]
  - Trigeminal neuralgia [Unknown]
  - Ear disorder [Unknown]
  - Alopecia [Recovered/Resolved]
  - Dizziness [Not Recovered/Not Resolved]
  - CSF test abnormal [Unknown]
  - Hypoaesthesia [Not Recovered/Not Resolved]

NARRATIVE: CASE EVENT DATE: 201503
